FAERS Safety Report 5389056-X (Version None)
Quarter: 2007Q3

REPORT INFORMATION
  Report Type: 
  Country: None (occurrence: None)
  Receive Date: 20070713
  Receipt Date: 20070702
  Transmission Date: 20080115
  Serious: Yes (Other)
  Sender: FDA-Public Use
  Company Number: 015806

PATIENT
  Age: 7 Week
  Sex: Male
  Weight: 2 kg

DRUGS (3)
  1. DIAMOX [Suspect]
     Dosage: 18 MG, BID VIA NG TUBE, OTHER
     Route: 050
     Dates: start: 20070619, end: 20070629
  2. ALBUTEROL [Concomitant]
  3. PULMICORT [Concomitant]

REACTIONS (5)
  - APNOEA [None]
  - BRADYCARDIA [None]
  - BRONCHOSPASM [None]
  - DRUG DISPENSING ERROR [None]
  - RESPIRATORY RATE INCREASED [None]
